FAERS Safety Report 9543044 (Version 1)
Quarter: 2013Q2

REPORT INFORMATION
  Report Type: Spontaneous
  Country: US (occurrence: None)
  Receive Date: 20130524
  Receipt Date: 20130524
  Transmission Date: 20140414
  Serious: No
  Sender: FDA-Public Use
  Company Number: PHEH2013US001059

PATIENT
  Age: 43 Year
  Sex: Female
  Weight: 53.1 kg

DRUGS (1)
  1. GILENYA [Suspect]
     Indication: MULTIPLE SCLEROSIS
     Dates: start: 20120405

REACTIONS (4)
  - Joint swelling [None]
  - Swelling [None]
  - Oedema peripheral [None]
  - Multiple sclerosis relapse [None]
